FAERS Safety Report 25429102 (Version 1)
Quarter: 2025Q2

REPORT INFORMATION
  Report Type: Spontaneous
  Country: US (occurrence: None)
  Receive Date: 20250612
  Receipt Date: 20250612
  Transmission Date: 20250717
  Serious: No
  Sender: FDA-CTU
  Company Number: None

PATIENT

DRUGS (1)
  1. HYDROXYZINE PAMOATE [Suspect]
     Active Substance: HYDROXYZINE PAMOATE

REACTIONS (5)
  - Chest discomfort [None]
  - Product communication issue [None]
  - Middle insomnia [None]
  - Speech disorder [None]
  - Wheezing [None]
